FAERS Safety Report 11863883 (Version 1)
Quarter: 2015Q4

REPORT INFORMATION
  Report Type: Spontaneous
  Country: GB (occurrence: GB)
  Receive Date: 20151223
  Receipt Date: 20151223
  Transmission Date: 20160305
  Serious: Yes (Other)
  Sender: FDA-Public Use
  Company Number: GB-ASTRAZENECA-2015SF27234

PATIENT
  Age: 52 Year
  Sex: Female

DRUGS (6)
  1. ACAMPROSATE [Concomitant]
     Active Substance: ACAMPROSATE
  2. THIAMINE. [Concomitant]
     Active Substance: THIAMINE
  3. VITAMIN B COMPLEX STRONG [Concomitant]
  4. QUETIAPINE [Suspect]
     Active Substance: QUETIAPINE
     Indication: BIPOLAR DISORDER
     Route: 048
     Dates: start: 2013, end: 20151101
  5. QUETIAPINE [Suspect]
     Active Substance: QUETIAPINE
     Indication: BIPOLAR DISORDER
     Dosage: DOSE INCREASED
     Route: 048
     Dates: start: 201507
  6. PREGABALIN. [Concomitant]
     Active Substance: PREGABALIN

REACTIONS (8)
  - Confusional state [Unknown]
  - Arteritis [Unknown]
  - Impaired self-care [Unknown]
  - Headache [Unknown]
  - Contusion [Unknown]
  - Lupus-like syndrome [Recovering/Resolving]
  - Injury [Unknown]
  - Amnesia [Unknown]

NARRATIVE: CASE EVENT DATE: 20151025
